FAERS Safety Report 14763723 (Version 1)
Quarter: 2018Q2

REPORT INFORMATION
  Report Type: Spontaneous
  Country: JP (occurrence: JP)
  Receive Date: 20180416
  Receipt Date: 20180416
  Transmission Date: 20180711
  Serious: Yes (Hospitalization)
  Sender: FDA-Public Use
  Company Number: JP-ELI_LILLY_AND_COMPANY-JP201803012530

PATIENT
  Age: 55 Year
  Sex: Female

DRUGS (3)
  1. NEUROTROPIN                        /06251301/ [Suspect]
     Active Substance: ORYCTOLAGUS CUNICULUS SKIN
     Indication: FIBROMYALGIA
     Dosage: UNK
     Route: 048
  2. TALTZ [Suspect]
     Active Substance: IXEKIZUMAB
     Indication: PSORIATIC ARTHROPATHY
     Dosage: UNK
     Route: 058
     Dates: start: 201712
  3. TRAMCET [Suspect]
     Active Substance: ACETAMINOPHEN\TRAMADOL
     Indication: FIBROMYALGIA
     Dosage: UNK
     Route: 048

REACTIONS (1)
  - Fibromyalgia [Recovered/Resolved]

NARRATIVE: CASE EVENT DATE: 20180320
